FAERS Safety Report 6370024-6 (Version None)
Quarter: 2009Q3

REPORT INFORMATION
  Report Type: 
  Country: None (occurrence: None)
  Receive Date: 20090923
  Receipt Date: 20070403
  Transmission Date: 20100115
  Serious: Yes (Other)
  Sender: FDA-Public Use
  Company Number: US-ASTRAZENECA-2005UW13298

PATIENT
  Age: 12025 Day
  Sex: Female
  Weight: 136.1 kg

DRUGS (24)
  1. SEROQUEL [Suspect]
     Indication: ANXIETY DISORDER
     Route: 048
     Dates: start: 20021101
  2. SEROQUEL [Suspect]
     Indication: SLEEP DISORDER
     Route: 048
     Dates: start: 20021101
  3. SEROQUEL [Suspect]
     Indication: BRUXISM
     Route: 048
     Dates: start: 20021101
  4. SEROQUEL [Suspect]
     Dosage: 25 MG-150 MG
     Route: 048
     Dates: start: 20020322
  5. SEROQUEL [Suspect]
     Dosage: 25 MG-150 MG
     Route: 048
     Dates: start: 20020322
  6. SEROQUEL [Suspect]
     Dosage: 25 MG-150 MG
     Route: 048
     Dates: start: 20020322
  7. CYCLOBENZAPRINE [Concomitant]
     Route: 048
     Dates: start: 20011109
  8. HYDROCODONE BITARTRATE AND ACETAMINOPHEN [Concomitant]
     Dosage: 5 MG- 500 MG EVERY SIX HOURS
     Route: 048
     Dates: start: 20030122
  9. CARISOPRODOL [Concomitant]
     Indication: MUSCLE SPASMS
     Route: 048
     Dates: start: 20020515
  10. CLONAZEPAM [Concomitant]
     Dosage: 1 MG TABLET, 0.5 MG AT NIGHT
     Route: 048
     Dates: start: 20030130
  11. METFORMIN HCL [Concomitant]
     Route: 048
     Dates: start: 20031219
  12. AVANDIA [Concomitant]
     Route: 048
     Dates: start: 20031004
  13. WELLBUTRIN SR [Concomitant]
     Dosage: 100-300 MG
     Route: 048
     Dates: start: 20020112
  14. VERAPAMIL [Concomitant]
     Route: 048
     Dates: start: 20030829
  15. MORPHINE SULFATE INJ [Concomitant]
     Dosage: 15 MG. 1-2 TABS EVERY 8-12 HOURS
     Route: 048
     Dates: start: 20030923
  16. TRAMADOL HCL [Concomitant]
     Route: 048
     Dates: start: 20030829
  17. PREVACID [Concomitant]
     Route: 048
     Dates: start: 20011204
  18. PROPOXYPHENE NAPSYLATE AND ACETAMINOPHEN [Concomitant]
     Dosage: 100/650 EVERY SIX  HOURS
     Route: 048
  19. ALPRAZOLAM [Concomitant]
     Indication: ANXIETY
     Route: 048
     Dates: start: 20011109
  20. QUININE SULFATE [Concomitant]
     Route: 048
     Dates: start: 20020928
  21. MEXILETINE HYDROCHLORIDE [Concomitant]
     Dosage: 200 MG DAILY FOR 1 WEEK, THEN TWO TIMES DAILY FOR 2 WEEKS, THEN THREE TIMES DAILY
     Route: 048
     Dates: start: 20030508
  22. PIROXICAM [Concomitant]
     Route: 048
     Dates: start: 20011109
  23. MEDROXYPROGESTERONE [Concomitant]
     Route: 048
     Dates: start: 20020612
  24. PREMARIN [Concomitant]
     Route: 048

REACTIONS (3)
  - DIABETES MELLITUS [None]
  - GLUCOSE TOLERANCE IMPAIRED [None]
  - TYPE 2 DIABETES MELLITUS [None]
